FAERS Safety Report 5289820-1 (Version None)
Quarter: 2007Q2

REPORT INFORMATION
  Report Type: 
  Country: None (occurrence: None)
  Receive Date: 20070406
  Receipt Date: 20070329
  Transmission Date: 20071010
  Serious: Yes (Other)
  Sender: FDA-Public Use
  Company Number: DE-SANOFI-SYNTHELABO-A04200700554

PATIENT
  Sex: Female

DRUGS (2)
  1. QUENSYL [Suspect]
     Indication: BORRELIA BURGDORFERI SEROLOGY POSITIVE
     Dosage: UNK
     Route: 048
  2. CLARITHROMYCIN [Concomitant]
     Indication: BORRELIA BURGDORFERI SEROLOGY POSITIVE
     Dosage: UNK
     Route: 048

REACTIONS (1)
  - BIPOLAR I DISORDER [None]
